FAERS Safety Report 4595167-9 (Version None)
Quarter: 2005Q1

REPORT INFORMATION
  Report Type: 
  Country: None (occurrence: None)
  Receive Date: 20050224
  Receipt Date: 20050221
  Transmission Date: 20050727
  Serious: Yes (Hospitalization, Disabling)
  Sender: FDA-Public Use
  Company Number: 05-02-0258

PATIENT
  Age: 77 Year
  Sex: Female
  Weight: 50 kg

DRUGS (5)
  1. METRONIDAZOLE [Suspect]
     Indication: CLOSTRIDIAL INFECTION
     Dosage: 400 MG ORAL
     Route: 048
     Dates: start: 20041224, end: 20050101
  2. PHENYTOIN [Concomitant]
  3. OMEPRAZOLE [Concomitant]
  4. FLUCLOXACILLIN [Concomitant]
  5. AUGMENTIN '125' [Concomitant]

REACTIONS (2)
  - PNEUMONIA [None]
  - SOMNOLENCE [None]
